FAERS Safety Report 6199962-4 (Version None)
Quarter: 2009Q2

REPORT INFORMATION
  Report Type: 
  Country: None (occurrence: None)
  Receive Date: 20090522
  Receipt Date: 20090513
  Transmission Date: 20091009
  Serious: Yes (Other)
  Sender: FDA-Public Use
  Company Number: US-TYCO HEALTHCARE/MALLINCKRODT-T200901063

PATIENT
  Sex: Female

DRUGS (3)
  1. OPTIRAY 300 [Suspect]
     Indication: COMPUTERISED TOMOGRAM THORAX
     Dosage: 100 ML, SINGLE
     Dates: start: 20090512, end: 20090512
  2. BENADRYL [Concomitant]
     Indication: PREMEDICATION
     Dosage: @ 13, 7 AND 1 HOUR PRIOR
     Dates: start: 20090501, end: 20090512
  3. PREDNISONE [Concomitant]
     Indication: PREMEDICATION
     Dosage: @ 13, 7 AND 1 HOUR PRIOR
     Dates: start: 20090501, end: 20090512

REACTIONS (3)
  - CHEST DISCOMFORT [None]
  - DYSPNOEA [None]
  - THROAT TIGHTNESS [None]
